FAERS Safety Report 23916218 (Version 1)
Quarter: 2024Q2

REPORT INFORMATION
  Report Type: Spontaneous
  Country: IT (occurrence: IT)
  Receive Date: 20240529
  Receipt Date: 20240529
  Transmission Date: 20240716
  Serious: Yes (Death, Hospitalization)
  Sender: FDA-Public Use
  Company Number: IT-AMGEN-ITASP2024103781

PATIENT

DRUGS (1)
  1. CINACALCET HYDROCHLORIDE [Suspect]
     Active Substance: CINACALCET HYDROCHLORIDE
     Indication: Product used for unknown indication
     Dosage: UNK
     Route: 065

REACTIONS (18)
  - Cardiac failure acute [Fatal]
  - Cardiac disorder [Fatal]
  - Cerebrovascular accident [Fatal]
  - Myocardial infarction [Fatal]
  - Sepsis [Fatal]
  - Atrial fibrillation [Unknown]
  - Bronchitis [Unknown]
  - Cholecystitis acute [Unknown]
  - Arteriovenous fistula [Unknown]
  - Device related infection [Unknown]
  - Acute pulmonary oedema [Unknown]
  - Cardiac failure congestive [Unknown]
  - Hyperpyrexia [Unknown]
  - Hypertensive crisis [Unknown]
  - Hypoglycaemic coma [Unknown]
  - Haematoma [Unknown]
  - Abscess limb [Unknown]
  - Jaundice cholestatic [Unknown]
